FAERS Safety Report 4526791-7 (Version None)
Quarter: 2004Q4

REPORT INFORMATION
  Report Type: 
  Country: None (occurrence: None)
  Receive Date: 20041213
  Receipt Date: 20041206
  Transmission Date: 20050328
  Serious: Yes (Other)
  Sender: FDA-Public Use
  Company Number: 2004UW22782

PATIENT
  Age: 39 Year
  Sex: Male
  Weight: 41.27 kg

DRUGS (1)
  1. SEROQUEL [Suspect]
     Dosage: 50 MG BID PO
     Route: 048
     Dates: start: 20041028, end: 20041101

REACTIONS (2)
  - MYOPIA [None]
  - NERVOUSNESS [None]
